FAERS Safety Report 26060227 (Version 2)
Quarter: 2025Q4

REPORT INFORMATION
  Report Type: Spontaneous
  Country: US (occurrence: US)
  Receive Date: 20251118
  Receipt Date: 20251124
  Transmission Date: 20260118
  Serious: Yes (Life-Threatening, Hospitalization, Other)
  Sender: DR REDDYS
  Company Number: None

PATIENT
  Age: 19 Year
  Sex: Female

DRUGS (5)
  1. MOXIFLOXACIN [Suspect]
     Active Substance: MOXIFLOXACIN
     Indication: Pulmonary tuberculosis
     Dosage: 400 MG DAILY
  2. RIFAPENTINE [Suspect]
     Active Substance: RIFAPENTINE
     Indication: Pulmonary tuberculosis
     Dosage: 1200 MG DAILY
  3. ISONIAZID [Suspect]
     Active Substance: ISONIAZID
     Indication: Pulmonary tuberculosis
     Dosage: 300 MG DAILY
  4. PYRIDOXINE [Suspect]
     Active Substance: PYRIDOXINE
     Indication: Pulmonary tuberculosis
     Dosage: 25 MG DAILY
  5. PYRAZINAMIDE [Suspect]
     Active Substance: PYRAZINAMIDE
     Indication: Pulmonary tuberculosis
     Dosage: 1500 MG DAILY

REACTIONS (9)
  - Drug reaction with eosinophilia and systemic symptoms [Recovering/Resolving]
  - Drug reaction with eosinophilia and systemic symptoms [Recovering/Resolving]
  - Shock [Recovering/Resolving]
  - Acute hepatic failure [Recovered/Resolved]
  - Acute kidney injury [Recovered/Resolved]
  - Leukopenia [Recovered/Resolved]
  - Pneumothorax [Recovered/Resolved]
  - Pericardial effusion [Recovered/Resolved]
  - Product use in unapproved indication [Unknown]
